FAERS Safety Report 13625694 (Version 3)
Quarter: 2022Q3

REPORT INFORMATION
  Report Type: Spontaneous
  Country: US (occurrence: US)
  Receive Date: 20170607
  Receipt Date: 20220821
  Transmission Date: 20221026
  Serious: No
  Sender: FDA-Public Use
  Company Number: US-JNJFOC-20170503050

PATIENT
  Age: 11 Year
  Sex: Male

DRUGS (2)
  1. RISPERDAL [Suspect]
     Active Substance: RISPERIDONE
     Indication: Aggression
     Route: 048
     Dates: start: 20030918, end: 20040218
  2. RISPERDAL [Suspect]
     Active Substance: RISPERIDONE
     Indication: Affect lability

REACTIONS (2)
  - Emotional disorder [Unknown]
  - Gynaecomastia [Unknown]
